FAERS Safety Report 23536114 (Version 3)
Quarter: 2024Q2

REPORT INFORMATION
  Report Type: Spontaneous
  Country: US (occurrence: US)
  Receive Date: 20240219
  Receipt Date: 20240424
  Transmission Date: 20240716
  Serious: Yes (Disabling, Other)
  Sender: FDA-Public Use
  Company Number: US-SAMSUNG BIOEPIS-SB-2024-04583

PATIENT
  Age: 80 Year
  Sex: Female
  Weight: 74.91 kg

DRUGS (2)
  1. HADLIMA [Suspect]
     Active Substance: ADALIMUMAB-BWWD
     Indication: Rheumatoid arthritis
     Dosage: 40 MG/0.8 ML. THERAPY START DATE ABOUT ONE AND A HALF MONTHS AGO; 4TH HADLIMA DOSE
     Route: 058
     Dates: start: 202312
  2. UNSPECIFIED INGREDIENT [Concomitant]
     Active Substance: UNSPECIFIED INGREDIENT
     Indication: Blood pressure measurement

REACTIONS (11)
  - Rheumatoid arthritis [Recovering/Resolving]
  - Injection site bruising [Recovering/Resolving]
  - Ocular discomfort [Recovering/Resolving]
  - Condition aggravated [Recovering/Resolving]
  - Joint swelling [Recovering/Resolving]
  - Joint range of motion decreased [Recovering/Resolving]
  - Muscular weakness [Recovering/Resolving]
  - Injection site pain [Recovering/Resolving]
  - Wrong technique in product usage process [Recovering/Resolving]
  - Incorrect dose administered [Recovering/Resolving]
  - Device issue [Recovering/Resolving]

NARRATIVE: CASE EVENT DATE: 20240202
